FAERS Safety Report 6038215-1 (Version None)
Quarter: 2009Q1

REPORT INFORMATION
  Report Type: 
  Country: None (occurrence: None)
  Receive Date: 20090115
  Receipt Date: 20070419
  Transmission Date: 20090719
  Serious: Yes (Hospitalization)
  Sender: FDA-Public Use
  Company Number: BE-PFIZER INC-2007003532

PATIENT

DRUGS (7)
  1. SUNITINIB MALATE [Suspect]
     Indication: RENAL CELL CARCINOMA
     Dosage: 37.5 MG, 1X/DAY
     Route: 048
     Dates: start: 20060721, end: 20061209
  2. TRAMADOL HCL [Concomitant]
     Route: 048
  3. DUOVENT [Concomitant]
  4. VENTOLIN [Concomitant]
  5. BEFACT FORTE [Concomitant]
  6. LONARID [Concomitant]
  7. TRAZODONE HCL [Concomitant]

REACTIONS (2)
  - COUGH [None]
  - GENERAL PHYSICAL HEALTH DETERIORATION [None]
